FAERS Safety Report 17660706 (Version 1)
Quarter: 2020Q2

REPORT INFORMATION
  Report Type: Spontaneous
  Country: US (occurrence: US)
  Receive Date: 20200413
  Receipt Date: 20200413
  Transmission Date: 20200713
  Serious: No
  Sender: FDA-Public Use
  Company Number: US-MYLANLABS-2020M1035391

PATIENT
  Sex: Female
  Weight: 65.77 kg

DRUGS (2)
  1. ATORVASTATIN CALCIUM TABLETS [Suspect]
     Active Substance: ATORVASTATIN CALCIUM
     Indication: CARDIAC DISORDER
     Dosage: 40 MILLIGRAM, QD
     Route: 048
     Dates: start: 2018, end: 2018
  2. ATORVASTATIN CALCIUM TABLETS [Suspect]
     Active Substance: ATORVASTATIN CALCIUM
     Dosage: 40 MILLIGRAM, QD
     Route: 048
     Dates: start: 2020, end: 20200402

REACTIONS (8)
  - Glossitis [Unknown]
  - Tongue discomfort [Unknown]
  - Oral pain [Not Recovered/Not Resolved]
  - Stomatitis [Unknown]
  - Product use complaint [Not Recovered/Not Resolved]
  - Product size issue [Unknown]
  - Expired product administered [Recovered/Resolved]
  - Wrong technique in product usage process [Unknown]

NARRATIVE: CASE EVENT DATE: 2018
